FAERS Safety Report 25268994 (Version 4)
Quarter: 2025Q2

REPORT INFORMATION
  Report Type: Spontaneous
  Country: CL (occurrence: CL)
  Receive Date: 20250505
  Receipt Date: 20250611
  Transmission Date: 20250717
  Serious: No
  Sender: PFIZER
  Company Number: CL-PFIZER INC-PV202500049352

PATIENT
  Age: 14 Year
  Sex: Male

DRUGS (1)
  1. GENOTROPIN [Suspect]
     Active Substance: SOMATROPIN

REACTIONS (1)
  - Device mechanical issue [Unknown]
